FAERS Safety Report 8257348-2 (Version None)
Quarter: 2012Q1

REPORT INFORMATION
  Report Type: 
  Country: None (occurrence: None)
  Receive Date: 20120330
  Receipt Date: 20120319
  Transmission Date: 20120608
  Serious: Yes (Other)
  Sender: FDA-Public Use
  Company Number: FK201200825

PATIENT
  Age: 68 Year
  Sex: Male

DRUGS (2)
  1. HEPARIN [Suspect]
     Indication: PROPHYLAXIS
     Dosage: 200 IU/KG, INTRAVENOUS BOLUS, 50 IU/KG, INTRAVENOUS BOLUS
     Route: 040
  2. CARDIOPLEGIA SOLUTION (CARDIOPLEGIA) [Concomitant]

REACTIONS (2)
  - HYPERKALAEMIA [None]
  - HYPOALDOSTERONISM [None]
